FAERS Safety Report 8436600-1 (Version None)
Quarter: 2012Q2

REPORT INFORMATION
  Report Type: 
  Country: None (occurrence: None)
  Receive Date: 20120614
  Receipt Date: 20120604
  Transmission Date: 20120825
  Serious: No
  Sender: FDA-Public Use
  Company Number: US-ASTRAZENECA-2011SE30629

PATIENT
  Age: 44 Year
  Sex: Male
  Weight: 72.6 kg

DRUGS (7)
  1. CELEXA [Concomitant]
     Indication: BIPOLAR DISORDER
  2. SEROQUEL XR [Suspect]
     Indication: ANXIETY
     Route: 048
  3. SEROQUEL XR [Suspect]
     Route: 048
  4. SEROQUEL XR [Suspect]
     Indication: BIPOLAR DISORDER
     Route: 048
  5. SEROQUEL XR [Suspect]
     Indication: MANIA
     Route: 048
  6. SEROQUEL XR [Suspect]
     Route: 048
  7. SEROQUEL XR [Suspect]
     Route: 048

REACTIONS (5)
  - INSOMNIA [None]
  - NASOPHARYNGITIS [None]
  - DRUG DOSE OMISSION [None]
  - NEURALGIA [None]
  - VOMITING [None]
